FAERS Safety Report 17844590 (Version 7)
Quarter: 2022Q2

REPORT INFORMATION
  Report Type: Spontaneous
  Country: CA (occurrence: None)
  Receive Date: 20200601
  Receipt Date: 20220608
  Transmission Date: 20220721
  Serious: Yes (Disabling)
  Sender: FDA-Public Use
  Company Number: CA-ROCHE-2606292

PATIENT
  Age: 37 Year
  Sex: Female

DRUGS (33)
  1. ACTEMRA [Suspect]
     Active Substance: TOCILIZUMAB
     Indication: Rheumatoid arthritis
     Route: 065
  2. ACTEMRA [Suspect]
     Active Substance: TOCILIZUMAB
     Indication: Rheumatoid arthritis
     Dosage: NOT SPECIFIED
     Route: 058
  3. LEFLUNOMIDE [Suspect]
     Active Substance: LEFLUNOMIDE
     Indication: Rheumatoid arthritis
     Route: 065
  4. LEFLUNOMIDE [Suspect]
     Active Substance: LEFLUNOMIDE
     Route: 065
  5. ENBREL [Suspect]
     Active Substance: ETANERCEPT
     Indication: Rheumatoid arthritis
     Route: 065
  6. ENBREL [Suspect]
     Active Substance: ETANERCEPT
     Route: 058
  7. HUMIRA [Suspect]
     Active Substance: ADALIMUMAB
     Indication: Rheumatoid arthritis
     Route: 058
  8. HYDROXYCHLOROQUINE [Suspect]
     Active Substance: HYDROXYCHLOROQUINE
     Indication: Rheumatoid arthritis
     Route: 065
  9. HYDROXYCHLOROQUINE [Suspect]
     Active Substance: HYDROXYCHLOROQUINE
     Route: 058
  10. HYDROXYCHLOROQUINE SULFATE [Suspect]
     Active Substance: HYDROXYCHLOROQUINE SULFATE
     Indication: Rheumatoid arthritis
     Route: 065
  11. HYDROXYCHLOROQUINE SULFATE [Suspect]
     Active Substance: HYDROXYCHLOROQUINE SULFATE
     Route: 065
  12. LEFLUNOMIDE [Suspect]
     Active Substance: LEFLUNOMIDE
     Indication: Rheumatoid arthritis
     Route: 065
  13. LEFLUNOMIDE [Suspect]
     Active Substance: LEFLUNOMIDE
     Route: 065
  14. METHOTREXATE [Suspect]
     Active Substance: METHOTREXATE
     Indication: Rheumatoid arthritis
     Route: 065
  15. METHOTREXATE [Suspect]
     Active Substance: METHOTREXATE
     Route: 065
  16. ORENCIA [Suspect]
     Active Substance: ABATACEPT
     Indication: Rheumatoid arthritis
     Route: 065
  17. PLAQUENIL [Suspect]
     Active Substance: HYDROXYCHLOROQUINE SULFATE
     Indication: Rheumatoid arthritis
     Route: 065
  18. REMICADE [Suspect]
     Active Substance: INFLIXIMAB
     Indication: Rheumatoid arthritis
     Route: 042
  19. REMICADE [Suspect]
     Active Substance: INFLIXIMAB
     Route: 042
  20. RITUXIMAB [Suspect]
     Active Substance: RITUXIMAB
     Indication: Rheumatoid arthritis
     Route: 041
  21. RITUXIMAB [Suspect]
     Active Substance: RITUXIMAB
     Indication: Rheumatoid arthritis
     Route: 065
  22. ALEVE [Concomitant]
     Active Substance: NAPROXEN SODIUM
  23. ARAVA [Concomitant]
     Active Substance: LEFLUNOMIDE
     Indication: Rheumatoid arthritis
     Route: 065
  24. PREDNISONE [Concomitant]
     Active Substance: PREDNISONE
     Route: 065
  25. SIMPONI [Concomitant]
     Active Substance: GOLIMUMAB
     Route: 058
  26. SIMPONI [Concomitant]
     Active Substance: GOLIMUMAB
     Route: 065
  27. SIMPONI [Concomitant]
     Active Substance: GOLIMUMAB
     Route: 058
  28. XELJANZ [Concomitant]
     Active Substance: TOFACITINIB CITRATE
     Indication: Rheumatoid arthritis
     Route: 048
  29. XELJANZ [Concomitant]
     Active Substance: TOFACITINIB CITRATE
     Route: 065
  30. BUPROPION [Concomitant]
     Active Substance: BUPROPION
  31. SULFASALAZINE [Concomitant]
     Active Substance: SULFASALAZINE
  32. NAPROXEN SODIUM [Concomitant]
     Active Substance: NAPROXEN SODIUM
  33. HYDROXYCHLOROQUINE SULFATE [Concomitant]
     Active Substance: HYDROXYCHLOROQUINE SULFATE
     Indication: Rheumatoid arthritis
     Route: 065

REACTIONS (9)
  - Condition aggravated [Recovered/Resolved]
  - Diarrhoea [Recovered/Resolved]
  - Fatigue [Recovered/Resolved]
  - Hepatic enzyme increased [Recovered/Resolved]
  - Pneumonia [Recovered/Resolved]
  - Rheumatoid arthritis [Recovered/Resolved]
  - Drug ineffective [Unknown]
  - Contraindicated product administered [Unknown]
  - Off label use [Unknown]
